FAERS Safety Report 5605985-3 (Version None)
Quarter: 2008Q1

REPORT INFORMATION
  Report Type: 
  Country: None (occurrence: None)
  Receive Date: 20080129
  Receipt Date: 20071009
  Transmission Date: 20080703
  Serious: No
  Sender: FDA-Public Use
  Company Number: US-AMGEN-US247031

PATIENT
  Sex: Male
  Weight: 82.2 kg

DRUGS (4)
  1. VECTIBIX [Suspect]
     Indication: COLORECTAL CANCER
     Route: 042
     Dates: start: 20070723
  2. VECTIBIX [Suspect]
     Route: 042
     Dates: start: 20070905, end: 20070928
  3. CAMPTOSAR [Concomitant]
     Dates: start: 20070723
  4. CAMPTOSAR [Concomitant]
     Dates: start: 20070905, end: 20070928

REACTIONS (1)
  - DRUG INEFFECTIVE [None]
